FAERS Safety Report 14433750 (Version 2)
Quarter: 2018Q2

REPORT INFORMATION
  Report Type: Spontaneous
  Country: US (occurrence: US)
  Receive Date: 20180124
  Receipt Date: 20180412
  Transmission Date: 20180711
  Serious: Yes (Hospitalization, Other)
  Sender: FDA-Public Use
  Company Number: US-BAYER-2018-015016

PATIENT
  Age: 32 Year
  Sex: Female
  Weight: 73.9 kg

DRUGS (2)
  1. MIRENA [Suspect]
     Active Substance: LEVONORGESTREL
     Indication: CONTRACEPTION
     Dosage: 20 MCG/24HR, CONT
     Route: 015
     Dates: start: 20161110, end: 20180105
  2. MIRENA [Suspect]
     Active Substance: LEVONORGESTREL

REACTIONS (6)
  - Pelvic pain [Recovered/Resolved with Sequelae]
  - Abdominal pain [Recovered/Resolved with Sequelae]
  - Device difficult to use [Recovered/Resolved with Sequelae]
  - Bladder perforation [Recovered/Resolved with Sequelae]
  - Genital haemorrhage [Recovered/Resolved with Sequelae]
  - Uterine perforation [Recovered/Resolved with Sequelae]

NARRATIVE: CASE EVENT DATE: 201611
